FAERS Safety Report 24175430 (Version 1)
Quarter: 2024Q3

REPORT INFORMATION
  Report Type: Spontaneous
  Country: LV (occurrence: LV)
  Receive Date: 20240805
  Receipt Date: 20240805
  Transmission Date: 20241016
  Serious: Yes (Other)
  Sender: MERCK
  Company Number: LV-009507513-2408LVA000284

PATIENT
  Sex: Female

DRUGS (1)
  1. PEMBROLIZUMAB [Suspect]
     Active Substance: PEMBROLIZUMAB
     Indication: Triple negative breast cancer
     Dosage: UNK
     Dates: start: 20230810

REACTIONS (5)
  - Neuropathy peripheral [Unknown]
  - Adrenal insufficiency [Unknown]
  - Arthralgia [Unknown]
  - Headache [Unknown]
  - Blood thyroid stimulating hormone abnormal [Unknown]
